FAERS Safety Report 7998775-8 (Version None)
Quarter: 2011Q4

REPORT INFORMATION
  Report Type: 
  Country: None (occurrence: None)
  Receive Date: 20111221
  Receipt Date: 20111027
  Transmission Date: 20120403
  Serious: Yes (Other)
  Sender: FDA-Public Use
  Company Number: US-PURDUE-USA-2011-0079883

PATIENT
  Sex: Male

DRUGS (1)
  1. OXYCONTIN [Suspect]
     Indication: PAIN
     Dosage: UNK
     Dates: start: 20030615, end: 20080520

REACTIONS (4)
  - HEPATITIS C [None]
  - WEIGHT DECREASED [None]
  - DRUG DEPENDENCE [None]
  - HEPATOMEGALY [None]
